FAERS Safety Report 15763937 (Version 1)
Quarter: 2018Q4

REPORT INFORMATION
  Report Type: Spontaneous
  Country: GB (occurrence: GB)
  Receive Date: 20181227
  Receipt Date: 20181227
  Transmission Date: 20190205
  Serious: Yes (Other)
  Sender: FDA-Public Use
  Company Number: GB-TEVA-2018-GB-992413

PATIENT
  Age: 74 Year
  Sex: Male
  Weight: 68 kg

DRUGS (5)
  1. GLYCERYL TRINITRATE [Concomitant]
     Active Substance: NITROGLYCERIN
  2. RAMIPRIL. [Suspect]
     Active Substance: RAMIPRIL
     Indication: ANGINA PECTORIS
     Dosage: 2.5 MILLIGRAM DAILY; AFTER THE EVENING MEAL.
     Route: 048
     Dates: start: 20181126
  3. ACETYLSALICYLIC ACID [Suspect]
     Active Substance: ASPIRIN
     Indication: ANGINA PECTORIS
     Dosage: 75 MILLIGRAM DAILY; AFTER THE FIRST MEAL OF THE DAY.
     Route: 048
     Dates: start: 20181127
  4. BETAMETHASONE VALERATE. [Concomitant]
     Active Substance: BETAMETHASONE VALERATE
  5. HYDROXOCOBALAMIN [Concomitant]
     Active Substance: HYDROXOCOBALAMIN
     Dosage: 1MG/1ML

REACTIONS (1)
  - Gout [Recovering/Resolving]

NARRATIVE: CASE EVENT DATE: 20181128
